FAERS Safety Report 9959950 (Version 1)
Quarter: 2014Q1

REPORT INFORMATION
  Report Type: Report from Study
  Country: US (occurrence: US)
  Receive Date: 20140305
  Receipt Date: 20140305
  Transmission Date: 20141002
  Serious: No
  Sender: FDA-Public Use
  Company Number: US-ABBVIE-13P-163-1101385-00

PATIENT
  Age: 35 Year
  Sex: Female

DRUGS (5)
  1. HUMIRA [Suspect]
     Indication: COLITIS ULCERATIVE
     Dates: start: 20130117
  2. HUMIRA [Suspect]
     Dates: start: 201305, end: 20130621
  3. LOESTRIN 24 [Concomitant]
     Indication: ORAL CONTRACEPTION
  4. MULTIVITAMIN [Concomitant]
     Indication: VITAMIN SUPPLEMENTATION
     Dosage: DAILY
  5. ASACOL [Concomitant]
     Indication: COLITIS ULCERATIVE
     Dosage: 3 PILLS IN AM AND 3 PILLS IN PM

REACTIONS (1)
  - Colitis ulcerative [Recovering/Resolving]
